FAERS Safety Report 5008270-6 (Version None)
Quarter: 2006Q2

REPORT INFORMATION
  Report Type: 
  Country: None (occurrence: None)
  Receive Date: 20060523
  Receipt Date: 20050602
  Transmission Date: 20061013
  Serious: No
  Sender: FDA-Public Use
  Company Number: US-GLAXOSMITHKLINE-A0560955A

PATIENT
  Sex: Female

DRUGS (1)
  1. FLOLAN [Suspect]
     Dosage: .5MG CONTINUOUS
     Route: 042
     Dates: start: 20030401

REACTIONS (3)
  - FATIGUE [None]
  - PAIN IN JAW [None]
  - PHARMACEUTICAL PRODUCT COMPLAINT [None]
